FAERS Safety Report 10534955 (Version 1)
Quarter: 2014Q4

REPORT INFORMATION
  Report Type: Spontaneous
  Country: US (occurrence: US)
  Receive Date: 20141022
  Receipt Date: 20141022
  Transmission Date: 20150529
  Serious: Yes (Hospitalization, Other)
  Sender: FDA-Public Use
  Company Number: US-ACTAVIS-2014-22308

PATIENT
  Sex: Female

DRUGS (1)
  1. MATZIM HCL ER (LA) (WATSON LABORATORIES) [Suspect]
     Active Substance: DILTIAZEM HYDROCHLORIDE
     Indication: PRODUCT USED FOR UNKNOWN INDICATION
     Dosage: 360 MG, DAILY
     Route: 065
     Dates: start: 201404

REACTIONS (3)
  - Apparent death [Unknown]
  - Headache [Unknown]
  - Blood pressure increased [Unknown]
